FAERS Safety Report 7286257-0 (Version None)
Quarter: 2011Q1

REPORT INFORMATION
  Report Type: 
  Country: None (occurrence: None)
  Receive Date: 20110210
  Receipt Date: 20110202
  Transmission Date: 20110831
  Serious: Yes (Hospitalization)
  Sender: FDA-Public Use
  Company Number: PHHO2009DE12958

PATIENT
  Sex: Male
  Weight: 80 kg

DRUGS (4)
  1. NO TREATMENT RECEIVED [Suspect]
     Indication: RENAL TRANSPLANT
     Dosage: UNK
  2. URBASON [Suspect]
     Indication: RENAL TRANSPLANT
     Dosage: UNK
  3. SANDIMMUNE [Suspect]
     Indication: RENAL TRANSPLANT
     Dosage: UNK
     Dates: start: 20080527, end: 20080812
  4. MYFORTIC [Suspect]
     Indication: RENAL TRANSPLANT
     Dosage: UNK
     Route: 048

REACTIONS (5)
  - IMPAIRED HEALING [None]
  - DEBRIDEMENT [None]
  - COMPLICATIONS OF TRANSPLANTED KIDNEY [None]
  - CATHETER REMOVAL [None]
  - BLOOD CREATININE INCREASED [None]
